FAERS Safety Report 11732229 (Version 1)
Quarter: 2015Q4

REPORT INFORMATION
  Report Type: Spontaneous
  Country: US (occurrence: US)
  Receive Date: 20151110
  Receipt Date: 20151110
  Transmission Date: 20160304
  Serious: No
  Sender: FDA-Public Use
  Company Number: US-ELI_LILLY_AND_COMPANY-US201204003249

PATIENT
  Age: 76 Year
  Sex: Female

DRUGS (6)
  1. PREVACID [Concomitant]
     Active Substance: LANSOPRAZOLE
     Dosage: 30 MG, UNK
  2. TYLENOL 8 HR [Concomitant]
     Active Substance: ACETAMINOPHEN
  3. FORTEO [Suspect]
     Active Substance: TERIPARATIDE
     Indication: OSTEOPOROSIS
     Dosage: UNK
     Dates: start: 201107, end: 201203
  4. REQUIP [Concomitant]
     Active Substance: ROPINIROLE HYDROCHLORIDE
  5. CALCIUM [Concomitant]
     Active Substance: CALCIUM
     Dosage: 600 MG, BID
  6. BENADRYL [Concomitant]
     Active Substance: DIPHENHYDRAMINE HYDROCHLORIDE
     Dosage: 25 MG, UNK

REACTIONS (2)
  - Gait disturbance [Recovered/Resolved]
  - Pain [Recovering/Resolving]
